FAERS Safety Report 13397526 (Version 9)
Quarter: 2018Q1

REPORT INFORMATION
  Report Type: Spontaneous
  Country: US (occurrence: US)
  Receive Date: 20170403
  Receipt Date: 20180126
  Transmission Date: 20180508
  Serious: No
  Sender: FDA-Public Use
  Company Number: US-INCYTE CORPORATION-2017IN001414

PATIENT

DRUGS (9)
  1. EYE DROPS                          /00256502/ [Concomitant]
     Active Substance: OXYMETAZOLINE
     Indication: PRODUCT USED FOR UNKNOWN INDICATION
     Dosage: UNK
  2. JAKAFI [Suspect]
     Active Substance: RUXOLITINIB
     Dosage: 10 MG, BID
     Route: 048
     Dates: start: 20161216
  3. LOSARTAN. [Concomitant]
     Active Substance: LOSARTAN
     Indication: PRODUCT USED FOR UNKNOWN INDICATION
  4. TYLENOL [Concomitant]
     Active Substance: ACETAMINOPHEN
     Indication: PRODUCT USED FOR UNKNOWN INDICATION
     Dosage: UNK
  5. ZANTAC [Concomitant]
     Active Substance: RANITIDINE HYDROCHLORIDE
     Indication: PRODUCT USED FOR UNKNOWN INDICATION
     Dosage: UNK
  6. JAKAFI [Suspect]
     Active Substance: RUXOLITINIB
     Indication: MYELOFIBROSIS
     Dosage: 15 MG, BID
     Route: 048
     Dates: start: 20161216
  7. LOSARTAN AND HYDROCHLOROTHIAZIDE [Concomitant]
     Active Substance: HYDROCHLOROTHIAZIDE\LOSARTAN POTASSIUM
     Indication: PRODUCT USED FOR UNKNOWN INDICATION
  8. ADVIL (MEFENAMIC ACID) [Concomitant]
     Active Substance: MEFENAMIC ACID
     Indication: PRODUCT USED FOR UNKNOWN INDICATION
     Dosage: UNK
  9. JAKAFI [Suspect]
     Active Substance: RUXOLITINIB
     Dosage: 5 MG, BID
     Route: 048
     Dates: start: 20161216

REACTIONS (18)
  - White blood cell count increased [Unknown]
  - Fatigue [Unknown]
  - Visual impairment [Unknown]
  - Rash [Unknown]
  - Contusion [Unknown]
  - Red blood cell count decreased [Unknown]
  - Blood cholesterol increased [Unknown]
  - Eye disorder [Unknown]
  - Ear disorder [Unknown]
  - Intraocular pressure increased [Unknown]
  - Haemoglobin decreased [Unknown]
  - Asthenia [Unknown]
  - Gait disturbance [Unknown]
  - Tremor [Unknown]
  - Neoplasm skin [Unknown]
  - Dyspnoea [Unknown]
  - Fall [Unknown]
  - Red blood cell count increased [Unknown]

NARRATIVE: CASE EVENT DATE: 2017
